FAERS Safety Report 9268901 (Version 1)
Quarter: 2013Q2

REPORT INFORMATION
  Report Type: Spontaneous
  Country: US (occurrence: US)
  Receive Date: 20130503
  Receipt Date: 20130503
  Transmission Date: 20140414
  Serious: Yes (Other)
  Sender: FDA-Public Use
  Company Number: US-RANBAXY-2013US-68230

PATIENT
  Sex: Male
  Weight: 104.7 kg

DRUGS (2)
  1. LORAZEPAM [Suspect]
     Indication: NERVOUS SYSTEM DISORDER
     Dosage: 1 MG, QID
     Route: 048
  2. TESTOSTERONE [Concomitant]
     Indication: PRODUCT USED FOR UNKNOWN INDICATION
     Dosage: UNK
     Route: 065

REACTIONS (19)
  - Hypertension [Not Recovered/Not Resolved]
  - Eye injury [Not Recovered/Not Resolved]
  - Eating disorder [Not Recovered/Not Resolved]
  - Memory impairment [Not Recovered/Not Resolved]
  - Hot flush [Not Recovered/Not Resolved]
  - Visual impairment [Not Recovered/Not Resolved]
  - Dyspepsia [Not Recovered/Not Resolved]
  - Abdominal distension [Not Recovered/Not Resolved]
  - Sexual dysfunction [Not Recovered/Not Resolved]
  - Decreased appetite [Not Recovered/Not Resolved]
  - Dizziness [Not Recovered/Not Resolved]
  - Xerosis [Not Recovered/Not Resolved]
  - Constipation [Not Recovered/Not Resolved]
  - Saliva altered [Not Recovered/Not Resolved]
  - Dry mouth [Not Recovered/Not Resolved]
  - Night sweats [Not Recovered/Not Resolved]
  - Asthenia [Not Recovered/Not Resolved]
  - Headache [Not Recovered/Not Resolved]
  - Somnolence [Not Recovered/Not Resolved]
